FAERS Safety Report 8730476 (Version 2)
Quarter: 2013Q4

REPORT INFORMATION
  Report Type: Spontaneous
  Country: US (occurrence: US)
  Receive Date: 20120817
  Receipt Date: 20131101
  Transmission Date: 20140711
  Serious: No
  Sender: FDA-Public Use
  Company Number: US-009507513-1208USA006467

PATIENT
  Sex: 0

DRUGS (1)
  1. COPPERTONE WATER BABIES PURE + SIMPLE LOTION SPF 50 [Suspect]
     Indication: PRODUCT USED FOR UNKNOWN INDICATION
     Dosage: UNK, UNKNOWN
     Dates: start: 20120607

REACTIONS (3)
  - Eye irritation [Recovering/Resolving]
  - Lacrimation increased [Recovering/Resolving]
  - Accidental exposure to product [Recovering/Resolving]
